FAERS Safety Report 23701940 (Version 1)
Quarter: 2024Q2

REPORT INFORMATION
  Report Type: Spontaneous
  Country: US (occurrence: None)
  Receive Date: 20240402
  Receipt Date: 20240402
  Transmission Date: 20240716
  Serious: No
  Sender: FDA-Public Use
  Company Number: None

PATIENT
  Sex: Male

DRUGS (3)
  1. OPSUMIT [Suspect]
     Active Substance: MACITENTAN
  2. TYVASO DPI MAINT KIT [Concomitant]
  3. TADALAFIL [Concomitant]

REACTIONS (1)
  - Pneumonia [None]
